FAERS Safety Report 5962183-1 (Version None)
Quarter: 2008Q4

REPORT INFORMATION
  Report Type: 
  Country: None (occurrence: None)
  Receive Date: 20081121
  Receipt Date: 20081110
  Transmission Date: 20090506
  Serious: Yes (Death, Other)
  Sender: FDA-Public Use
  Company Number: US-BAXTER-2008BH004503

PATIENT
  Age: 6 Year
  Sex: Male
  Weight: 17 kg

DRUGS (7)
  1. HEPARIN SODIUM INJECTION [Suspect]
     Indication: CARDIOPULMONARY BYPASS
     Route: 065
     Dates: start: 20060308, end: 20060308
  2. HEPARIN SODIUM INJECTION [Suspect]
     Indication: EXTRACORPOREAL MEMBRANE OXYGENATION
     Route: 065
     Dates: start: 20060308, end: 20060308
  3. HEPARIN SODIUM INJECTION [Suspect]
     Route: 065
     Dates: start: 20060309, end: 20060309
  4. HEPARIN SODIUM INJECTION [Suspect]
     Route: 065
     Dates: start: 20060309, end: 20060309
  5. HEPARIN SODIUM INJECTION [Suspect]
     Route: 065
     Dates: start: 20060902, end: 20060902
  6. HEPARIN SODIUM INJECTION [Suspect]
     Route: 065
     Dates: start: 20060902, end: 20060902
  7. POTASSIUM CHLORIDE [Concomitant]
     Indication: DRUG USE FOR UNKNOWN INDICATION
     Route: 065
     Dates: start: 20060901, end: 20060901

REACTIONS (7)
  - CANDIDA SEPSIS [None]
  - CARDIOPULMONARY FAILURE [None]
  - HYPOTENSION [None]
  - PLEURAL EFFUSION [None]
  - POST PROCEDURAL HAEMORRHAGE [None]
  - RESPIRATORY FAILURE [None]
  - VENOUS THROMBOSIS [None]
